FAERS Safety Report 22103408 (Version 1)
Quarter: 2023Q1

REPORT INFORMATION
  Report Type: Spontaneous
  Country: US (occurrence: None)
  Receive Date: 20230316
  Receipt Date: 20230316
  Transmission Date: 20230417
  Serious: Yes (Hospitalization)
  Sender: FDA-Public Use
  Company Number: None

PATIENT
  Age: 71 Year
  Sex: Male
  Weight: 109 kg

DRUGS (1)
  1. FOTIVDA [Suspect]
     Active Substance: TIVOZANIB HYDROCHLORIDE
     Dosage: FREQUENCY : DAILY;?
     Route: 048

REACTIONS (6)
  - Oedema peripheral [None]
  - Scrotal swelling [None]
  - Weight increased [None]
  - Tachycardia [None]
  - Therapy interrupted [None]
  - Pain [None]

NARRATIVE: CASE EVENT DATE: 20230308
